FAERS Safety Report 7562041-5 (Version None)
Quarter: 2011Q2

REPORT INFORMATION
  Report Type: 
  Country: None (occurrence: None)
  Receive Date: 20110622
  Receipt Date: 20090203
  Transmission Date: 20111010
  Serious: Yes (Hospitalization, Other)
  Sender: FDA-Public Use
  Company Number: PHHY2009DE68668

PATIENT
  Sex: Male

DRUGS (7)
  1. SANDOSTATIN LAR [Suspect]
     Indication: PANCREATIC NEUROENDOCRINE TUMOUR
     Dosage: 30 MG
     Route: 030
     Dates: start: 20090203
  2. PANTOPRAZOLE [Concomitant]
     Dosage: 40 MG, BID
  3. VIGANTOL [Concomitant]
     Dosage: 10 ML
  4. NYSTATIN ^HOLSTEN^ [Concomitant]
  5. DOCITON [Concomitant]
     Dosage: 40 MG
  6. PURINOL [Concomitant]
     Dosage: 10 MG
  7. PANKREON [Concomitant]
     Dosage: 3 DF

REACTIONS (8)
  - BACK PAIN [None]
  - PRURITUS [None]
  - DIARRHOEA [None]
  - VOMITING [None]
  - GASTROINTESTINAL PAIN [None]
  - NAUSEA [None]
  - GENERAL PHYSICAL HEALTH DETERIORATION [None]
  - INFECTION [None]
